FAERS Safety Report 7200312-2 (Version None)
Quarter: 2010Q4

REPORT INFORMATION
  Report Type: 
  Country: None (occurrence: None)
  Receive Date: 20101228
  Receipt Date: 20101213
  Transmission Date: 20110411
  Serious: Yes (Other)
  Sender: FDA-Public Use
  Company Number: B0690520A

PATIENT
  Age: 67 Year
  Sex: Female

DRUGS (1)
  1. ACITRETIN [Suspect]
     Dosage: 35MG PER DAY
     Route: 065

REACTIONS (1)
  - PYOGENIC GRANULOMA [None]
